FAERS Safety Report 6774887-1 (Version None)
Quarter: 2010Q2

REPORT INFORMATION
  Report Type: 
  Country: None (occurrence: None)
  Receive Date: 20100617
  Receipt Date: 20100506
  Transmission Date: 20101027
  Serious: Yes (Death, Hospitalization, Other)
  Sender: FDA-Public Use
  Company Number: US-BAXTER-2010BH007382

PATIENT
  Sex: Female

DRUGS (23)
  1. HEPARIN SODIUM [Suspect]
     Indication: INTRAVENOUS CATHETER MANAGEMENT
     Route: 042
     Dates: start: 20080101, end: 20080314
  2. HEPARIN SODIUM 1,000 UNITS AND SODIUM CHLORIDE 0.9% [Suspect]
     Indication: BRONCHOSCOPY
     Route: 065
     Dates: start: 20080101, end: 20080314
  3. HEPARIN SODIUM 1,000 UNITS AND SODIUM CHLORIDE 0.9% [Suspect]
     Indication: THORACOTOMY
     Route: 065
     Dates: start: 20080101, end: 20080314
  4. HEPARIN SODIUM 1,000 UNITS AND SODIUM CHLORIDE 0.9% [Suspect]
     Indication: LUNG WEDGE RESECTION
     Route: 065
     Dates: start: 20080101, end: 20080314
  5. HEPARIN SODIUM [Suspect]
     Indication: BRONCHOSCOPY
     Route: 065
     Dates: start: 20080101, end: 20080314
  6. HEPARIN SODIUM [Suspect]
     Indication: THORACOTOMY
     Route: 065
     Dates: start: 20080101, end: 20080314
  7. HEPARIN SODIUM [Suspect]
     Indication: LUNG WEDGE RESECTION
     Route: 065
     Dates: start: 20080101, end: 20080314
  8. HEPARIN SODIUM [Suspect]
     Route: 042
     Dates: start: 20080101, end: 20080314
  9. HEPARIN SODIUM [Suspect]
     Route: 042
     Dates: start: 20080101, end: 20080314
  10. HEPARIN SODIUM [Suspect]
     Route: 042
     Dates: start: 20080101, end: 20080314
  11. POTASSIUM CHLORIDE [Concomitant]
     Indication: DRUG USE FOR UNKNOWN INDICATION
     Route: 065
  12. MUPIROCIN [Concomitant]
     Indication: DRUG USE FOR UNKNOWN INDICATION
     Route: 065
  13. METRONIDAZOLE [Concomitant]
     Indication: DRUG USE FOR UNKNOWN INDICATION
     Route: 065
  14. INSULIN [Concomitant]
     Indication: DRUG USE FOR UNKNOWN INDICATION
     Route: 065
  15. FUROSEMIDE [Concomitant]
     Indication: DRUG USE FOR UNKNOWN INDICATION
     Route: 065
  16. ESOMEPRAZOLE MAGNESIUM [Concomitant]
     Indication: DRUG USE FOR UNKNOWN INDICATION
     Route: 065
  17. ENOXAPARIN SODIUM [Concomitant]
     Indication: DRUG USE FOR UNKNOWN INDICATION
     Route: 065
  18. CIPROFLOXACIN [Concomitant]
     Indication: DRUG USE FOR UNKNOWN INDICATION
     Route: 065
  19. LASIX [Concomitant]
     Indication: DRUG USE FOR UNKNOWN INDICATION
     Route: 065
  20. OXYCODONE [Concomitant]
     Indication: DRUG USE FOR UNKNOWN INDICATION
     Route: 065
  21. MORPHINE [Concomitant]
     Indication: DRUG USE FOR UNKNOWN INDICATION
     Route: 065
  22. IPRATROPIUM BROMIDE [Concomitant]
     Indication: DRUG USE FOR UNKNOWN INDICATION
     Route: 065
  23. LEVALBUTEROL HYDROCHLORIDE [Concomitant]
     Indication: DRUG USE FOR UNKNOWN INDICATION
     Route: 065

REACTIONS (7)
  - CHRONIC OBSTRUCTIVE PULMONARY DISEASE [None]
  - DIARRHOEA [None]
  - LUNG NEOPLASM MALIGNANT [None]
  - MALNUTRITION [None]
  - PULMONARY AIR LEAKAGE [None]
  - RESPIRATORY FAILURE [None]
  - SEPSIS [None]
